FAERS Safety Report 8598885-0 (Version None)
Quarter: 2012Q3

REPORT INFORMATION
  Report Type: 
  Country: None (occurrence: None)
  Receive Date: 20120816
  Receipt Date: 20120814
  Transmission Date: 20120928
  Serious: Yes (Other)
  Sender: FDA-Public Use
  Company Number: US-PFIZER INC-2012199672

PATIENT
  Sex: Male

DRUGS (2)
  1. CHANTIX [Suspect]
  2. ZOLOFT [Concomitant]

REACTIONS (3)
  - DEPRESSION [None]
  - BLOOD PRESSURE FLUCTUATION [None]
  - VISUAL IMPAIRMENT [None]
